FAERS Safety Report 10753441 (Version 1)
Quarter: 2015Q1

REPORT INFORMATION
  Report Type: Spontaneous
  Country: IN (occurrence: IN)
  Receive Date: 20150131
  Receipt Date: 20150131
  Transmission Date: 20150721
  Serious: Yes (Other)
  Sender: FDA-Public Use
  Company Number: PHHY2015IN010822

PATIENT
  Age: 38 Year
  Sex: Female

DRUGS (1)
  1. TRIAMCINOLONE [Suspect]
     Active Substance: TRIAMCINOLONE
     Indication: LICHEN PLANUS
     Dosage: 10 MG/ML, QMO
     Route: 026

REACTIONS (5)
  - Chromoblastomycosis [Unknown]
  - Granuloma skin [Unknown]
  - Skin papilloma [Unknown]
  - Hyperkeratosis [Unknown]
  - Acanthosis [Unknown]
